FAERS Safety Report 7610870-1 (Version None)
Quarter: 2011Q3

REPORT INFORMATION
  Report Type: 
  Country: None (occurrence: None)
  Receive Date: 20110715
  Receipt Date: 20110712
  Transmission Date: 20111222
  Serious: Yes (Hospitalization)
  Sender: FDA-Public Use
  Company Number: JP-BRISTOL-MYERS SQUIBB COMPANY-15876519

PATIENT
  Age: 48 Year
  Sex: Male
  Weight: 75 kg

DRUGS (5)
  1. PERAPRIN [Concomitant]
     Dates: start: 20110622
  2. PACLITAXEL [Suspect]
     Indication: GASTRIC CANCER
     Dosage: DAY 1,8,15 C6D1:15JUN11
     Route: 042
     Dates: start: 20110126, end: 20110622
  3. NAUZELIN [Concomitant]
     Dosage: TABS
     Dates: start: 20110622
  4. NORVASC [Concomitant]
     Dosage: TABS
     Dates: start: 20110615
  5. LOXONIN [Concomitant]
     Dosage: TABS
     Dates: start: 20110622

REACTIONS (1)
  - DEPRESSED LEVEL OF CONSCIOUSNESS [None]
